FAERS Safety Report 7035725-5 (Version None)
Quarter: 2010Q4

REPORT INFORMATION
  Report Type: 
  Country: None (occurrence: None)
  Receive Date: 20101008
  Receipt Date: 20100930
  Transmission Date: 20110411
  Serious: Yes (Life-Threatening, Hospitalization)
  Sender: FDA-Public Use
  Company Number: FR-BRISTOL-MYERS SQUIBB COMPANY-15323116

PATIENT
  Age: 63 Year
  Sex: Male

DRUGS (10)
  1. GLUCOPHAGE [Suspect]
  2. SINTROM [Concomitant]
     Dosage: DISCONTINUE.
  3. DIGOXIN [Concomitant]
  4. LEVOTHYROXINE SODIUM [Concomitant]
  5. FUROSEMIDE [Concomitant]
  6. ALDACTONE [Concomitant]
  7. LISINOPRIL [Concomitant]
  8. LANTUS [Concomitant]
  9. DIAMICRON [Concomitant]
  10. FENOFIBRATE [Concomitant]

REACTIONS (3)
  - HYPERKALAEMIA [None]
  - LACTIC ACIDOSIS [None]
  - RENAL FAILURE ACUTE [None]
